FAERS Safety Report 15695334 (Version 12)
Quarter: 2019Q3

REPORT INFORMATION
  Report Type: Spontaneous
  Country: CA (occurrence: CA)
  Receive Date: 20181206
  Receipt Date: 20190926
  Transmission Date: 20191004
  Serious: Yes (Other)
  Sender: FDA-Public Use
  Company Number: CA-CELLTRION INC.-2018CA024412

PATIENT

DRUGS (22)
  1. INFLECTRA [Suspect]
     Active Substance: INFLIXIMAB-DYYB
     Dosage: 300 MG, AT 0,1,2,6 WEEKS AND THEN EVERY 4 WEEKS
     Route: 042
     Dates: start: 20190107
  2. INFLECTRA [Suspect]
     Active Substance: INFLIXIMAB-DYYB
     Dosage: 300 MG, AT 0,1,2,6 WEEKS AND THEN EVERY 4 WEEKS
     Route: 042
  3. INFLECTRA [Suspect]
     Active Substance: INFLIXIMAB-DYYB
     Dosage: 300 MG, AT 0,1,2,6 WEEKS AND THEN EVERY 4 WEEKS
     Route: 042
     Dates: start: 20190429
  4. INFLECTRA [Suspect]
     Active Substance: INFLIXIMAB-DYYB
     Dosage: 300 MG, AT 0,1,2,6 WEEKS AND THEN EVERY 4 WEEKS
     Route: 042
     Dates: start: 20190626
  5. VITAMIN B12 [Concomitant]
     Active Substance: CYANOCOBALAMIN
     Dosage: 1000 MICROGRAM, DAILY
     Route: 054
  6. INFLECTRA [Suspect]
     Active Substance: INFLIXIMAB-DYYB
     Dosage: 300 MG, AT 0,1,2,6 WEEKS AND THEN EVERY 4 WEEKS
     Route: 042
     Dates: start: 20190204
  7. PREDNISONE. [Concomitant]
     Active Substance: PREDNISONE
     Dosage: 40 MG, TAPERING BY 5 MG UNTIL AT 20 MG
  8. INFLECTRA [Suspect]
     Active Substance: INFLIXIMAB-DYYB
     Indication: COLITIS ULCERATIVE
     Dosage: 300 MG, AT 0,1,2,6 WEEKS AND THEN EVERY 4 WEEKS
     Route: 042
     Dates: start: 20181115
  9. INFLECTRA [Suspect]
     Active Substance: INFLIXIMAB-DYYB
     Dosage: 300 MG, AT 0,1,2,6 WEEKS AND THEN EVERY 4 WEEKS
     Route: 042
     Dates: start: 20190527
  10. MEZAVANT [Concomitant]
     Active Substance: MESALAMINE
     Dosage: 1.2 G, DAILY (^4X^)
     Route: 065
  11. PENTASA [Concomitant]
     Active Substance: MESALAMINE
     Dosage: 1 DF, DAILY (IN THE EVENING)
     Route: 054
  12. INFLECTRA [Suspect]
     Active Substance: INFLIXIMAB-DYYB
     Dosage: 300 MG, AT 0,1,2,6 WEEKS AND THEN EVERY 4 WEEKS
     Route: 042
     Dates: start: 20181207
  13. PREDNISONE. [Concomitant]
     Active Substance: PREDNISONE
     Dosage: 20 MG, (TAPERING BY 2.5 A WEEK UNTIL COMPLETELY OFF)
  14. ENTOCORT [Concomitant]
     Active Substance: BUDESONIDE
     Dosage: MORNING
     Route: 054
  15. INFLECTRA [Suspect]
     Active Substance: INFLIXIMAB-DYYB
     Dosage: 300 MG, AT 0,1,2,6 WEEKS AND THEN EVERY 4 WEEKS
     Route: 042
     Dates: start: 20190304
  16. PREDNISONE. [Concomitant]
     Active Substance: PREDNISONE
     Dosage: 20 MG, (TAPERING BY 5 MG UNTIL OFF)
     Route: 065
     Dates: start: 20190118
  17. INFLECTRA [Suspect]
     Active Substance: INFLIXIMAB-DYYB
     Dosage: 300 MG, AT 0,1,2,6 WEEKS AND THEN EVERY 4 WEEKS
     Route: 042
     Dates: start: 20181126
  18. INFLECTRA [Suspect]
     Active Substance: INFLIXIMAB-DYYB
     Dosage: 300 MG, AT 0,1,2,6 WEEKS AND THEN EVERY 4 WEEKS
     Route: 042
  19. INFLECTRA [Suspect]
     Active Substance: INFLIXIMAB-DYYB
     Dosage: 300 MG, AT 0,1,2,6 WEEKS AND THEN EVERY 4 WEEKS
     Route: 042
     Dates: start: 20190722
  20. INFLECTRA [Suspect]
     Active Substance: INFLIXIMAB-DYYB
     Dosage: 300 MG, AT 0,1,2,6 WEEKS AND THEN EVERY 4 WEEKS
     Route: 042
     Dates: start: 20190819
  21. INFLECTRA [Suspect]
     Active Substance: INFLIXIMAB-DYYB
     Dosage: 300 MG, AT 0,1,2,6 WEEKS AND THEN EVERY 4 WEEKS
     Route: 042
     Dates: start: 20190916
  22. VITAMINE D [Concomitant]
     Active Substance: CHOLECALCIFEROL
     Dosage: 3000 IU, DAILY
     Route: 065

REACTIONS (12)
  - Weight increased [Unknown]
  - Abdominal pain [Unknown]
  - Diarrhoea [Unknown]
  - Bowel movement irregularity [Unknown]
  - Abdominal distension [Unknown]
  - Off label use [Unknown]
  - Heart rate irregular [Unknown]
  - Infusion site pain [Unknown]
  - Therapeutic response shortened [Unknown]
  - Inappropriate schedule of product administration [Unknown]
  - Condition aggravated [Unknown]
  - Intentional product use issue [Unknown]

NARRATIVE: CASE EVENT DATE: 20181115
